FAERS Safety Report 8576289-4 (Version None)
Quarter: 2012Q3

REPORT INFORMATION
  Report Type: 
  Country: None (occurrence: None)
  Receive Date: 20120807
  Receipt Date: 20120803
  Transmission Date: 20120928
  Serious: Yes (Death, Other)
  Sender: FDA-Public Use
  Company Number: US-ROCHE-1097355

PATIENT
  Sex: Male

DRUGS (2)
  1. ACCUTANE [Suspect]
     Indication: PRODUCT USED FOR UNKNOWN INDICATION
     Route: 065
     Dates: start: 19850219, end: 19850507
  2. ACCUTANE [Suspect]
     Route: 065
     Dates: start: 19910204, end: 19910501

REACTIONS (2)
  - DEATH [None]
  - INFLAMMATORY BOWEL DISEASE [None]
